FAERS Safety Report 7587312-8 (Version None)
Quarter: 2011Q3

REPORT INFORMATION
  Report Type: 
  Country: None (occurrence: None)
  Receive Date: 20110701
  Receipt Date: 20110630
  Transmission Date: 20111222
  Serious: Yes (Other)
  Sender: FDA-Public Use
  Company Number: GB-MERCK-1007GBR00076

PATIENT
  Sex: Male

DRUGS (4)
  1. ASPIRIN [Concomitant]
     Route: 065
  2. ZOCOR [Suspect]
     Route: 065
     Dates: start: 20000101
  3. ZOCOR [Suspect]
     Indication: ACUTE MYOCARDIAL INFARCTION
     Route: 048
     Dates: start: 19880101, end: 19880101
  4. WARFARIN [Concomitant]
     Route: 065

REACTIONS (5)
  - SUICIDAL IDEATION [None]
  - SEXUAL DYSFUNCTION [None]
  - ABNORMAL BEHAVIOUR [None]
  - INSOMNIA [None]
  - MUSCLE SPASMS [None]
